FAERS Safety Report 8074601-6 (Version None)
Quarter: 2012Q1

REPORT INFORMATION
  Report Type: 
  Country: None (occurrence: None)
  Receive Date: 20120126
  Receipt Date: 20120123
  Transmission Date: 20120608
  Serious: Yes (Other)
  Sender: FDA-Public Use
  Company Number: US-PFIZER INC-2011305872

PATIENT
  Sex: Female

DRUGS (3)
  1. CHANTIX [Suspect]
     Indication: SMOKING CESSATION THERAPY
     Dosage: 0.5 MG, 1X/DAY
     Route: 048
     Dates: start: 20111220
  2. CENTRUM [Concomitant]
     Dosage: UNK
  3. CHANTIX [Suspect]
     Dosage: UNK
     Route: 048
     Dates: end: 20111222

REACTIONS (6)
  - GAIT DISTURBANCE [None]
  - HYPERTENSION [None]
  - DIZZINESS [None]
  - MYOCARDIAL INFARCTION [None]
  - DEPRESSED MOOD [None]
  - HEADACHE [None]
